FAERS Safety Report 7298145-4 (Version None)
Quarter: 2011Q1

REPORT INFORMATION
  Report Type: 
  Country: None (occurrence: None)
  Receive Date: 20110207
  Receipt Date: 20110121
  Transmission Date: 20110831
  Serious: Yes (Other)
  Sender: FDA-Public Use
  Company Number: 2011AP000103

PATIENT
  Age: 62 Year
  Sex: Female

DRUGS (1)
  1. ALENDRONATE SODIUM [Suspect]
     Indication: OSTEOPOROSIS
     Dosage: 70 MG; QW
     Route: 048

REACTIONS (10)
  - PAIN IN JAW [None]
  - BONE FRAGMENTATION [None]
  - BLOOD CALCIUM INCREASED [None]
  - TOOTH EXTRACTION [None]
  - SWELLING FACE [None]
  - MOUTH ULCERATION [None]
  - OROANTRAL FISTULA [None]
  - OSTEONECROSIS OF JAW [None]
  - UPPER AIRWAY OBSTRUCTION [None]
  - NASAL POLYPS [None]
